FAERS Safety Report 6983736-8 (Version None)
Quarter: 2010Q3

REPORT INFORMATION
  Report Type: 
  Country: None (occurrence: None)
  Receive Date: 20100914
  Receipt Date: 20081208
  Transmission Date: 20110219
  Serious: No
  Sender: FDA-Public Use
  Company Number: US-WYE-H07140408

PATIENT
  Age: 82 Year
  Sex: Female
  Weight: 65.83 kg

DRUGS (8)
  1. ADVIL LIQUI-GELS [Suspect]
     Indication: ARTHRITIS
     Route: 048
     Dates: start: 20080601
  2. FOLIC ACID [Concomitant]
  3. ICAPS [Concomitant]
  4. VITAMIN A [Concomitant]
  5. VITAMIN D [Concomitant]
  6. SIMVASTATIN [Concomitant]
  7. VITAMIN B-12 [Concomitant]
  8. CALCIUM [Concomitant]

REACTIONS (1)
  - CONTUSION [None]
